FAERS Safety Report 15680772 (Version 1)
Quarter: 2018Q4

REPORT INFORMATION
  Report Type: Spontaneous
  Country: SE (occurrence: SE)
  Receive Date: 20181203
  Receipt Date: 20181203
  Transmission Date: 20190205
  Serious: Yes (Other)
  Sender: FDA-Public Use
  Company Number: SE-JNJFOC-20181136141

PATIENT
  Sex: Female

DRUGS (1)
  1. HALDOL [Suspect]
     Active Substance: HALOPERIDOL
     Indication: HALLUCINATION, AUDITORY
     Route: 065

REACTIONS (5)
  - Gait disturbance [Unknown]
  - Muscle twitching [Unknown]
  - Syncope [Unknown]
  - Muscle spasms [Unknown]
  - Sensory disturbance [Unknown]
